FAERS Safety Report 18602452 (Version 2)
Quarter: 2020Q4

REPORT INFORMATION
  Report Type: Report from Study
  Country: JP (occurrence: JP)
  Receive Date: 20201211
  Receipt Date: 20201216
  Transmission Date: 20210114
  Serious: Yes (Other)
  Sender: FDA-Public Use
  Company Number: JP-SA-2020SA350700

PATIENT

DRUGS (3)
  1. ISATUXIMAB [Suspect]
     Active Substance: ISATUXIMAB
     Indication: PLASMA CELL MYELOMA
     Dosage: DAILY DOSE: 700 (4 TIMES AT 1-WEEK INTERVALS FOR THE FIRST CYCLE AND TWICE AT 2-WEEK INTERVALS FOR T
     Route: 041
     Dates: start: 20200917, end: 20201130
  2. POMALIDOMIDE [Suspect]
     Active Substance: POMALIDOMIDE
     Indication: PLASMA CELL MYELOMA
     Dosage: 4 MG, QD (DAILY ADMINISTRATION FOR 21 DAYS FOLLOWED BY 7 DAYS OFF)
     Route: 065
     Dates: start: 20200917, end: 20201130
  3. DEXAMETHASONE. [Suspect]
     Active Substance: DEXAMETHASONE
     Indication: PLASMA CELL MYELOMA
     Dosage: DAILY DOSE: 20 MG
     Route: 065
     Dates: start: 20200917, end: 20201214

REACTIONS (2)
  - Cytomegalovirus chorioretinitis [Not Recovered/Not Resolved]
  - Visual acuity reduced [Not Recovered/Not Resolved]

NARRATIVE: CASE EVENT DATE: 20201130
